FAERS Safety Report 7632557-1 (Version None)
Quarter: 2011Q3

REPORT INFORMATION
  Report Type: 
  Country: None (occurrence: None)
  Receive Date: 20110725
  Receipt Date: 20101012
  Transmission Date: 20111222
  Serious: No
  Sender: FDA-Public Use
  Company Number: US-BRISTOL-MYERS SQUIBB COMPANY-15329568

PATIENT
  Age: 69 Year
  Sex: Female

DRUGS (10)
  1. ELMIRON [Concomitant]
  2. WARFARIN SODIUM [Suspect]
     Indication: ATRIAL FIBRILLATION
     Dates: start: 20100101
  3. BENICAR [Concomitant]
  4. AMBIEN [Concomitant]
  5. DILTIAZEM CD [Concomitant]
  6. DICYCLOMINE [Concomitant]
  7. LORAZEPAM [Concomitant]
  8. FLECAINIDE ACETATE [Concomitant]
  9. BYSTOLIC [Concomitant]
  10. NEXIUM [Concomitant]

REACTIONS (1)
  - ALOPECIA [None]
